FAERS Safety Report 22384727 (Version 1)
Quarter: 2023Q2

REPORT INFORMATION
  Report Type: Spontaneous
  Country: US (occurrence: None)
  Receive Date: 20230526
  Receipt Date: 20230526
  Transmission Date: 20230722
  Serious: No
  Sender: FDA-Public Use
  Company Number: None

PATIENT
  Age: 61 Year
  Sex: Female

DRUGS (2)
  1. TALTZ [Suspect]
     Active Substance: IXEKIZUMAB
     Indication: Psoriatic arthropathy
     Dosage: OTHER QUANTITY : 80MG (1 PEN);?FREQUENCY : MONTHLY;?
     Route: 058
     Dates: start: 202203
  2. TALTZ [Suspect]
     Active Substance: IXEKIZUMAB
     Indication: Senile osteoporosis

REACTIONS (6)
  - Therapy interrupted [None]
  - COVID-19 [None]
  - Herpes zoster [None]
  - Arthralgia [None]
  - Pain in extremity [None]
  - Swelling [None]
